FAERS Safety Report 5974993-5 (Version None)
Quarter: 2008Q4

REPORT INFORMATION
  Report Type: 
  Country: None (occurrence: None)
  Receive Date: 20081202
  Receipt Date: 20081121
  Transmission Date: 20090506
  Serious: Yes (Other)
  Sender: FDA-Public Use
  Company Number: GR-JNJFOC-20080701641

PATIENT
  Age: 26 Year
  Sex: Male
  Weight: 95 kg

DRUGS (2)
  1. REMICADE [Suspect]
     Route: 040
  2. REMICADE [Suspect]
     Indication: PSORIASIS
     Route: 040

REACTIONS (1)
  - HYPOAESTHESIA [None]
